FAERS Safety Report 5245829-5 (Version None)
Quarter: 2007Q1

REPORT INFORMATION
  Report Type: 
  Country: None (occurrence: None)
  Receive Date: 20070216
  Receipt Date: 20070205
  Transmission Date: 20070707
  Serious: Yes (Hospitalization)
  Sender: FDA-Public Use
  Company Number: 2007BI000698

PATIENT
  Age: 64 Year
  Sex: Female

DRUGS (14)
  1. AVONEX [Suspect]
     Indication: MULTIPLE SCLEROSIS
     Dosage: 30 UG;QW;IM
     Route: 030
     Dates: start: 20010406, end: 20031103
  2. AVONEX [Suspect]
     Indication: MULTIPLE SCLEROSIS
     Dosage: 30 UG;QW;IM
     Route: 030
     Dates: start: 20050307
  3. LIPITOR [Concomitant]
  4. CALCIUM [Concomitant]
  5. IMITREX [Concomitant]
  6. ATACAND [Concomitant]
  7. ALLEGRA [Concomitant]
  8. MECLIZINE [Concomitant]
  9. METFORMIN HCL [Concomitant]
  10. BETAXOLOL [Concomitant]
  11. FOSAMAX [Concomitant]
  12. EVISTA [Concomitant]
  13. FUROSEMIDE [Concomitant]
  14. FISH OIL [Concomitant]

REACTIONS (4)
  - DIABETES MELLITUS NON-INSULIN-DEPENDENT [None]
  - DIARRHOEA [None]
  - VIRAL LABYRINTHITIS [None]
  - VOMITING [None]
